FAERS Safety Report 7132979-1 (Version None)
Quarter: 2010Q4

REPORT INFORMATION
  Report Type: 
  Country: None (occurrence: None)
  Receive Date: 20101202
  Receipt Date: 20101122
  Transmission Date: 20110411
  Serious: Yes (Hospitalization, Other)
  Sender: FDA-Public Use
  Company Number: US-MERCK-0706USA03756

PATIENT
  Age: 89 Year
  Sex: Male
  Weight: 84 kg

DRUGS (1)
  1. FOSAMAX [Suspect]
     Indication: OSTEOPOROSIS
     Route: 048
     Dates: start: 20050518, end: 20060613

REACTIONS (28)
  - ABSCESS [None]
  - ANAEMIA OF MALIGNANT DISEASE [None]
  - BONE DENSITY DECREASED [None]
  - CARDIAC FAILURE CONGESTIVE [None]
  - CARDIOMYOPATHY [None]
  - CELLULITIS [None]
  - CORONARY ARTERY BYPASS [None]
  - COUGH [None]
  - DENTAL CARIES [None]
  - DYSPHONIA [None]
  - EPISTAXIS [None]
  - GASTROOESOPHAGEAL REFLUX DISEASE [None]
  - HYPERTENSION [None]
  - HYPOAESTHESIA [None]
  - INFECTED NEOPLASM [None]
  - INFECTION [None]
  - LYMPHOMA [None]
  - NEUTROPENIA [None]
  - ORAL HERPES [None]
  - POOR PERSONAL HYGIENE [None]
  - RHINITIS [None]
  - SINUSITIS [None]
  - SPINAL COLUMN STENOSIS [None]
  - STOMATITIS [None]
  - TOOTH DISORDER [None]
  - TOOTH LOSS [None]
  - VITAMIN B12 DEFICIENCY [None]
  - WEIGHT DECREASED [None]
